FAERS Safety Report 13163831 (Version 2)
Quarter: 2017Q1

REPORT INFORMATION
  Report Type: Spontaneous
  Country: TR (occurrence: TR)
  Receive Date: 20170130
  Receipt Date: 20170209
  Transmission Date: 20170428
  Serious: Yes (Other)
  Sender: FDA-Public Use
  Company Number: TR-PFIZER INC-2014113437

PATIENT
  Age: 41 Year
  Sex: Female

DRUGS (3)
  1. LUSTRAL [Suspect]
     Active Substance: SERTRALINE HYDROCHLORIDE
     Indication: BALANCE DISORDER
     Dosage: 50 MG, 2X/DAY
  2. LUSTRAL [Suspect]
     Active Substance: SERTRALINE HYDROCHLORIDE
     Indication: VERTEBROBASILAR INSUFFICIENCY
     Dosage: 50 MG, 2X/DAY
     Dates: start: 2003
  3. LUSTRAL [Suspect]
     Active Substance: SERTRALINE HYDROCHLORIDE
     Indication: VERTIGO
     Dosage: 12.5 MG (QUARTER TABLET OF 50 MG), DAILY

REACTIONS (4)
  - Vertebral artery hypoplasia [Unknown]
  - Toothache [Recovered/Resolved]
  - Therapeutic response unexpected [Unknown]
  - Pre-existing condition improved [Unknown]
